FAERS Safety Report 5543555-6 (Version None)
Quarter: 2007Q4

REPORT INFORMATION
  Report Type: 
  Country: None (occurrence: None)
  Receive Date: 20071206
  Receipt Date: 20071126
  Transmission Date: 20080405
  Serious: Yes (Other)
  Sender: FDA-Public Use
  Company Number: 230610J07USA

PATIENT
  Age: 44 Year
  Sex: Female
  Weight: 90.7194 kg

DRUGS (3)
  1. REBIF [Suspect]
     Indication: MULTIPLE SCLEROSIS
     Dosage: 44 MCG, 3 IN 1 WEEKS, SUBCUTANEOUS
     Route: 058
     Dates: start: 20061010
  2. SYNTHROID (LEVOTHYROXINE SODIUM)    VALIUM(DIAZEPAM) [Concomitant]
  3. VALIUM [Concomitant]

REACTIONS (2)
  - HYPERTENSION [None]
  - VITH NERVE DISORDER [None]
